APPROVED DRUG PRODUCT: DAPTOMYCIN
Active Ingredient: DAPTOMYCIN
Strength: 500MG/VIAL
Dosage Form/Route: POWDER;INTRAVENOUS
Application: A207104 | Product #001 | TE Code: AP
Applicant: SAGENT PHARMACEUTICALS INC
Approved: Nov 15, 2019 | RLD: No | RS: No | Type: RX